FAERS Safety Report 7248913-X (Version None)
Quarter: 2011Q1

REPORT INFORMATION
  Report Type: 
  Country: None (occurrence: None)
  Receive Date: 20110128
  Receipt Date: 20100517
  Transmission Date: 20110831
  Serious: Yes (Hospitalization, Other)
  Sender: FDA-Public Use
  Company Number: US-BAYER-201013288NA

PATIENT
  Sex: Female
  Weight: 91 kg

DRUGS (8)
  1. YAZ [Suspect]
     Indication: PRODUCT USED FOR UNKNOWN INDICATION
     Route: 048
  2. LEVOXYL [Concomitant]
  3. CLARITIN-D [Concomitant]
  4. PEPTO BISMOL [Concomitant]
     Indication: ABDOMINAL DISCOMFORT
     Dates: start: 20090801, end: 20090815
  5. NARINE [Concomitant]
  6. LEXAPRO [Concomitant]
  7. ANTIBIOTICS [Concomitant]
  8. THYROID THERAPY [Concomitant]

REACTIONS (5)
  - BACK PAIN [None]
  - CHOLELITHIASIS [None]
  - ABDOMINAL PAIN UPPER [None]
  - NAUSEA [None]
  - VOMITING [None]
